FAERS Safety Report 7835616 (Version 3)
Quarter: 2013Q3

REPORT INFORMATION
  Report Type: Report from Study
  Country: NL (occurrence: NL)
  Receive Date: 20110301
  Receipt Date: 20130930
  Transmission Date: 20140515
  Serious: Yes (Hospitalization)
  Sender: FDA-Public Use
  Company Number: NL-MEDIMMUNE-MEDI-0012735

PATIENT
  Age: 1 Month
  Sex: Male
  Weight: 2.8 kg

DRUGS (2)
  1. SYNAGIS [Suspect]
     Indication: ANTIVIRAL PROPHYLAXIS
     Route: 030
     Dates: start: 20110222
  2. CYCLOMETAZOLINE [Concomitant]
     Dosage: 1 DROP EACH NOSTRIL
     Route: 045
     Dates: start: 2011

REACTIONS (1)
  - Dyspnoea [Recovered/Resolved]
